FAERS Safety Report 9773848 (Version 1)
Quarter: 2013Q4

REPORT INFORMATION
  Report Type: Spontaneous
  Country: GR (occurrence: GR)
  Receive Date: 20131220
  Receipt Date: 20131220
  Transmission Date: 20140711
  Serious: Yes (Other)
  Sender: FDA-Public Use
  Company Number: GR-ROCHE-1320698

PATIENT
  Age: 26 Year
  Sex: Female

DRUGS (1)
  1. RITUXIMAB [Suspect]
     Indication: MYELITIS TRANSVERSE
     Route: 065

REACTIONS (3)
  - Anogenital warts [Not Recovered/Not Resolved]
  - Dysplasia [Not Recovered/Not Resolved]
  - Off label use [Unknown]
